FAERS Safety Report 4896306-2 (Version None)
Quarter: 2006Q1

REPORT INFORMATION
  Report Type: 
  Country: None (occurrence: None)
  Receive Date: 20060131
  Receipt Date: 20060124
  Transmission Date: 20060701
  Serious: Yes (Other)
  Sender: FDA-Public Use
  Company Number: US-JNJFOC-20060105055

PATIENT
  Sex: Male

DRUGS (1)
  1. ARESTIN [Suspect]
     Indication: PERIODONTITIS
     Route: 004

REACTIONS (1)
  - PERIODONTAL DESTRUCTION [None]
